FAERS Safety Report 16445201 (Version 1)
Quarter: 2019Q2

REPORT INFORMATION
  Report Type: Report from Study
  Country: NL (occurrence: NL)
  Receive Date: 20190618
  Receipt Date: 20190618
  Transmission Date: 20190711
  Serious: Yes (Other)
  Sender: FDA-Public Use
  Company Number: NL-PFIZER INC-2019256211

PATIENT

DRUGS (10)
  1. CISPLATIN. [Suspect]
     Active Substance: CISPLATIN
     Indication: HODGKIN^S DISEASE
     Dosage: 100 MG/M2, ON DAY 1
  2. CARMUSTINE. [Suspect]
     Active Substance: CARMUSTINE
     Indication: HODGKIN^S DISEASE
     Dosage: 300 MG/M2, ON DAY -7
  3. MELPHALAN. [Suspect]
     Active Substance: MELPHALAN
     Indication: HODGKIN^S DISEASE
     Dosage: 140 MG/M2, ON DAY -2
     Route: 042
  4. BRENTUXIMAB VEDOTIN RECOMBINANT [Suspect]
     Active Substance: BRENTUXIMAB VEDOTIN
     Indication: HODGKIN^S DISEASE
     Dosage: 1.8 MG/KG, CYCLIC (FIRST DAY OF EACH CYCLE)
  5. ETOPOSIDE. [Suspect]
     Active Substance: ETOPOSIDE
     Indication: HODGKIN^S DISEASE
     Dosage: 200 MG/M2, DAILY FROM DAY -6 TO DAY -3
     Route: 042
  6. AMOXICILLIN/CLAVULANIC ACID [Concomitant]
     Active Substance: AMOXICILLIN\CLAVULANIC ACID
     Dosage: UNK
  7. NEULASTA [Concomitant]
     Active Substance: PEGFILGRASTIM
     Indication: PROPHYLAXIS
     Dosage: 6 MG, ON DAY 5 OF CYCLES 1 AND 3
  8. CYTARABINE. [Suspect]
     Active Substance: CYTARABINE
     Dosage: 200 MG/M2, DAILY FROM DAY -6 TO DAY -3
     Route: 042
  9. CYTARABINE. [Suspect]
     Active Substance: CYTARABINE
     Indication: HODGKIN^S DISEASE
     Dosage: 2 G/M2 Q 12 HOURS (2 DOSES), ON DAY 2
  10. DEXAMETHASONE. [Suspect]
     Active Substance: DEXAMETHASONE
     Indication: HODGKIN^S DISEASE
     Dosage: 40 MG, CYCLIC (AT DAY1-4)

REACTIONS (2)
  - Acute hepatic failure [Unknown]
  - Atrial fibrillation [Unknown]
